FAERS Safety Report 9185073 (Version 1)
Quarter: 2012Q4

REPORT INFORMATION
  Report Type: 
  Country: FR (occurrence: US)
  Receive Date: 20121101
  Receipt Date: 20121101
  Transmission Date: 20130627
  Serious: Yes (Other)
  Sender: FDA-Public Use
  Company Number: US-ELI_LILLY_AND_COMPANY-US201210006548

PATIENT
  Sex: Male

DRUGS (2)
  1. HUMULIN REGULAR [Suspect]
     Dosage: UNK
  2. LANTUS [Concomitant]
     Dosage: UNK

REACTIONS (4)
  - Hyperglycaemia [Not Recovered/Not Resolved]
  - Dizziness [Unknown]
  - Nausea [Unknown]
  - Vision blurred [Unknown]
